FAERS Safety Report 5626892-6 (Version None)
Quarter: 2008Q1

REPORT INFORMATION
  Report Type: 
  Country: None (occurrence: None)
  Receive Date: 20080212
  Receipt Date: 20080204
  Transmission Date: 20080703
  Serious: Yes (Death)
  Sender: FDA-Public Use
  Company Number: GXKR2008GB01373

PATIENT
  Age: 39 Year
  Sex: Male

DRUGS (3)
  1. METHADONE HCL [Suspect]
     Indication: DRUG DEPENDENCE
     Dosage: ORAL
     Route: 048
  2. TEMAZEPAM [Suspect]
     Indication: DRUG DEPENDENCE
     Dosage: 20 MG, BID, ORAL
     Route: 048
  3. AMITRIPTYLINE (NGX)(AMITRIPTYLINE) [Suspect]

REACTIONS (2)
  - DRUG TOXICITY [None]
  - TREATMENT NONCOMPLIANCE [None]
